FAERS Safety Report 20197208 (Version 2)
Quarter: 2022Q1

REPORT INFORMATION
  Report Type: Other
  Country: JP (occurrence: JP)
  Receive Date: 20211217
  Receipt Date: 20220107
  Transmission Date: 20220423
  Serious: Yes (Hospitalization, Other)
  Sender: FDA-Public Use
  Company Number: JP-CHUGAI-2021026022

PATIENT
  Age: 66 Year
  Sex: Female
  Weight: 45.6 kg

DRUGS (6)
  1. HERCEPTIN [Suspect]
     Active Substance: TRASTUZUMAB
     Indication: HER2 positive breast cancer
     Route: 041
     Dates: start: 20190604, end: 20190806
  2. HERCEPTIN [Suspect]
     Active Substance: TRASTUZUMAB
     Indication: Breast cancer
     Route: 041
     Dates: start: 20200525
  3. PERJETA [Suspect]
     Active Substance: PERTUZUMAB
     Indication: HER2 positive breast cancer
     Route: 041
     Dates: start: 20190604, end: 20190806
  4. PERJETA [Suspect]
     Active Substance: PERTUZUMAB
     Route: 041
     Dates: start: 20200525, end: 20201130
  5. DOCETAXEL [Concomitant]
     Active Substance: DOCETAXEL
     Indication: HER2 positive breast cancer
     Route: 041
  6. LETROZOLE [Concomitant]
     Active Substance: LETROZOLE
     Indication: HER2 positive breast cancer
     Dosage: UNK
     Route: 048
     Dates: start: 20190529

REACTIONS (2)
  - Cardiac failure [Recovering/Resolving]
  - Cardiomyopathy [Recovering/Resolving]

NARRATIVE: CASE EVENT DATE: 20190808
